FAERS Safety Report 5647931-2 (Version None)
Quarter: 2008Q1

REPORT INFORMATION
  Report Type: 
  Country: None (occurrence: None)
  Receive Date: 20080229
  Receipt Date: 20080207
  Transmission Date: 20080703
  Serious: Yes (Other)
  Sender: FDA-Public Use
  Company Number: 163-20785-08021354

PATIENT
  Age: 37 Year
  Sex: Male

DRUGS (2)
  1. THALIDOMIDE [Suspect]
     Indication: NEUROENDOCRINE TUMOUR
     Dosage: 100 MG- 400 MG, ORAL
     Route: 048
  2. TEMOZOLOMIDE [Suspect]
     Indication: NEUROENDOCRINE TUMOUR
     Dosage: 150 MG/M2, DAILY EVERY OTHER WEEK,

REACTIONS (1)
  - HERPES ZOSTER [None]
